FAERS Safety Report 10157734 (Version 2)
Quarter: 2014Q2

REPORT INFORMATION
  Report Type: Spontaneous
  Country: IE (occurrence: IE)
  Receive Date: 20140507
  Receipt Date: 20140507
  Transmission Date: 20141212
  Serious: Yes (Hospitalization)
  Sender: FDA-Public Use
  Company Number: PHFR2014IE002518

PATIENT
  Age: 63 Year
  Sex: Female
  Weight: 63.8 kg

DRUGS (6)
  1. CLOZARIL [Suspect]
     Dosage: UNK
     Route: 048
     Dates: start: 20091111
  2. CLOZARIL [Suspect]
     Dosage: 225 MG, DAILY
     Route: 048
  3. AMISULPRIDE [Suspect]
     Dosage: 200 MG, BID
     Route: 048
     Dates: end: 20140319
  4. EPILIM CHRONO [Concomitant]
     Dosage: 200 MG, DAILY
     Route: 048
  5. ELTROXIN [Concomitant]
     Dosage: 25 MG, DAILY
     Route: 048
  6. DULCOLAX [Concomitant]
     Dosage: UNK
     Route: 048

REACTIONS (5)
  - Asthenia [Unknown]
  - Electrocardiogram QRS complex prolonged [Unknown]
  - Ventricular extrasystoles [Recovered/Resolved]
  - Electrocardiogram QT prolonged [Recovered/Resolved]
  - Heart rate irregular [Unknown]
